FAERS Safety Report 7893537-4 (Version None)
Quarter: 2011Q4

REPORT INFORMATION
  Report Type: 
  Country: None (occurrence: None)
  Receive Date: 20111104
  Receipt Date: 20111026
  Transmission Date: 20120403
  Serious: Yes (Hospitalization, Other)
  Sender: FDA-Public Use
  Company Number: US-MERCK-1109USA01917

PATIENT
  Age: 68 Year
  Sex: Female
  Weight: 93 kg

DRUGS (2)
  1. FOSAMAX [Suspect]
     Indication: OSTEOPOROSIS
     Route: 048
     Dates: start: 19970101, end: 20090101
  2. FOSAMAX [Suspect]
     Indication: OSTEOPENIA
     Route: 048
     Dates: start: 19970101, end: 20090101

REACTIONS (19)
  - STAPHYLOCOCCAL INFECTION [None]
  - ATRIAL FIBRILLATION [None]
  - RENAL FAILURE CHRONIC [None]
  - STRESS URINARY INCONTINENCE [None]
  - OBESITY [None]
  - HAEMORRHAGIC ANAEMIA [None]
  - CELLULITIS [None]
  - DILATATION ATRIAL [None]
  - VITAMIN D DEFICIENCY [None]
  - TOOTH EXTRACTION [None]
  - TACHYCARDIA [None]
  - DYSLIPIDAEMIA [None]
  - HYPOMAGNESAEMIA [None]
  - PATHOLOGICAL FRACTURE [None]
  - ARTHROPATHY [None]
  - HYPERCHOLESTEROLAEMIA [None]
  - HYPERTENSION [None]
  - INTERTRIGO [None]
  - HAEMORRHOIDS [None]
